FAERS Safety Report 9289936 (Version 1)
Quarter: 2013Q2

REPORT INFORMATION
  Report Type: Spontaneous
  Country: US (occurrence: US)
  Receive Date: 20130515
  Receipt Date: 20130515
  Transmission Date: 20140414
  Serious: Yes (Hospitalization)
  Sender: FDA-Public Use
  Company Number: US-BAYER-2013-059581

PATIENT
  Age: 45 Year
  Sex: Female
  Weight: 112.47 kg

DRUGS (11)
  1. YAZ [Suspect]
  2. YASMIN [Suspect]
  3. OCELLA [Suspect]
  4. PAXIL [Concomitant]
     Dosage: 20 MG, 1 TABLET A DAY
  5. MAXALT [Concomitant]
     Indication: HEADACHE
     Dosage: 10 MG, 1 TABLET PRN
     Route: 048
  6. IMITREX [Concomitant]
     Dosage: 100 MG, 1 TABLET A DAY PRN
  7. CALCIUM AND MAGNESIUM [Concomitant]
     Dosage: 750-465 MG AS DIRECTED
  8. FISH OIL [Concomitant]
  9. CALCIUM [Concomitant]
     Dosage: 600 MG, UNK
  10. ACIDOPHILUS [Concomitant]
  11. MULTIVITAMIN [Concomitant]
     Dosage: 1 DAILY

REACTIONS (1)
  - Pulmonary embolism [None]
